FAERS Safety Report 21068545 (Version 2)
Quarter: 2022Q3

REPORT INFORMATION
  Report Type: Report from Study
  Country: US (occurrence: US)
  Receive Date: 20220712
  Receipt Date: 20220804
  Transmission Date: 20221027
  Serious: Yes (Other)
  Sender: FDA-Public Use
  Company Number: US-HBP-2022US026903

PATIENT
  Sex: Female

DRUGS (2)
  1. VALCHLOR [Suspect]
     Active Substance: MECHLORETHAMINE
     Indication: Cutaneous T-cell lymphoma
     Dosage: THIN FILM, QD
     Route: 061
     Dates: start: 20150406, end: 202206
  2. VALCHLOR [Suspect]
     Active Substance: MECHLORETHAMINE
     Dosage: UNK, SOMETIMES SHE USED IT EVERY OTHER DAY/ SPARINGLY
     Route: 061
     Dates: start: 202206

REACTIONS (5)
  - Malignant neoplasm progression [Not Recovered/Not Resolved]
  - Application site atrophy [Not Recovered/Not Resolved]
  - Off label use [Unknown]
  - Therapy interrupted [Unknown]
  - Drug ineffective [Unknown]

NARRATIVE: CASE EVENT DATE: 20210101
